FAERS Safety Report 6115753-4 (Version None)
Quarter: 2009Q1

REPORT INFORMATION
  Report Type: 
  Country: None (occurrence: None)
  Receive Date: 20090313
  Receipt Date: 20080708
  Transmission Date: 20090719
  Serious: No
  Sender: FDA-Public Use
  Company Number: US-ABBOTT-08P-163-0461631-00

PATIENT
  Sex: Female
  Weight: 71.732 kg

DRUGS (4)
  1. HUMIRA [Suspect]
     Indication: RHEUMATOID ARTHRITIS
     Route: 058
     Dates: start: 20061001
  2. HYDROCHLOROTHIAZIDE [Interacting]
     Indication: HYPERTENSION
     Route: 048
     Dates: start: 20080522, end: 20080630
  3. LEFLUNOMIDE [Concomitant]
     Indication: RHEUMATOID ARTHRITIS
     Route: 048
     Dates: start: 20060101
  4. PREDNISONE [Concomitant]
     Indication: RHEUMATOID ARTHRITIS
     Dosage: 5-10 MG DAILY AS NEEDED
     Route: 048
     Dates: start: 20060101

REACTIONS (4)
  - BLISTER [None]
  - DRUG INTERACTION [None]
  - PRURITUS [None]
  - RASH PAPULAR [None]
